FAERS Safety Report 9701487 (Version 1)
Quarter: 2013Q4

REPORT INFORMATION
  Report Type: Report from Study
  Country: US (occurrence: US)
  Receive Date: 20131121
  Receipt Date: 20131121
  Transmission Date: 20140711
  Serious: Yes (Hospitalization)
  Sender: FDA-Public Use
  Company Number: US-US-EMD SERONO, INC.-7250375

PATIENT
  Age: 55 Year
  Sex: Female
  Weight: 148 kg

DRUGS (2)
  1. REBIF [Suspect]
     Indication: PRODUCT USED FOR UNKNOWN INDICATION
     Route: 058
     Dates: start: 20070920
  2. CYMBALTA [Concomitant]
     Indication: DEPRESSION
     Dates: start: 20131112

REACTIONS (6)
  - Wound [Not Recovered/Not Resolved]
  - Fall [Unknown]
  - Band sensation [Not Recovered/Not Resolved]
  - Crying [Not Recovered/Not Resolved]
  - Muscular weakness [Not Recovered/Not Resolved]
  - Sensation of heaviness [Not Recovered/Not Resolved]
